FAERS Safety Report 5076042-2 (Version None)
Quarter: 2006Q3

REPORT INFORMATION
  Report Type: 
  Country: None (occurrence: None)
  Receive Date: 20060804
  Receipt Date: 20060719
  Transmission Date: 20061208
  Serious: Yes (Death, Hospitalization)
  Sender: FDA-Public Use
  Company Number: DSA_28500_2006

PATIENT
  Age: 73 Year
  Sex: Female

DRUGS (5)
  1. TEMESTA [Suspect]
     Indication: ANXIETY
     Dosage: 1 MG QD; PO
     Route: 048
     Dates: start: 20060709, end: 20060709
  2. TEMESTA [Suspect]
     Indication: DYSPNOEA
     Dosage: 1 MG QD; PO
     Route: 048
     Dates: start: 20060709, end: 20060709
  3. TEMESTA [Suspect]
     Indication: PANIC ATTACK
     Dosage: 1 MG QD; PO
     Route: 048
     Dates: start: 20060709, end: 20060709
  4. MORPHINE [Concomitant]
  5. BETA-2 AGONIST [Concomitant]

REACTIONS (1)
  - RESPIRATORY ARREST [None]
